FAERS Safety Report 16061558 (Version 1)
Quarter: 2019Q2

REPORT INFORMATION
  Report Type: Spontaneous
  Country: US (occurrence: US)
  Receive Date: 20190312
  Receipt Date: 20190312
  Transmission Date: 20190711
  Serious: No
  Sender: FDA-Public Use
  Company Number: None

PATIENT
  Age: 65 Year
  Sex: Female
  Weight: 54.9 kg

DRUGS (6)
  1. METOPROLOL. [Concomitant]
     Active Substance: METOPROLOL
  2. ALENDRONATE SODIUM 70 MG TAB [Suspect]
     Active Substance: ALENDRONATE SODIUM
     Indication: OSTEOPOROSIS
     Dosage: ?          QUANTITY:1 TABLET(S);OTHER FREQUENCY:WEEKLY;?
     Route: 048
     Dates: start: 20190311, end: 20190311
  3. VIT B [Concomitant]
     Active Substance: VITAMIN B
  4. BOTOX [Concomitant]
     Active Substance: ONABOTULINUMTOXINA
  5. FISH OIL [Concomitant]
     Active Substance: FISH OIL
  6. CALCIUM [Concomitant]
     Active Substance: CALCIUM

REACTIONS (4)
  - Insomnia [None]
  - Hypophagia [None]
  - Diarrhoea [None]
  - Nausea [None]

NARRATIVE: CASE EVENT DATE: 20190311
